FAERS Safety Report 19796307 (Version 2)
Quarter: 2022Q1

REPORT INFORMATION
  Report Type: Spontaneous
  Country: US (occurrence: US)
  Receive Date: 20210907
  Receipt Date: 20220228
  Transmission Date: 20220424
  Serious: No
  Sender: FDA-Public Use
  Company Number: US-TAKEDA-2021TUS052861

PATIENT
  Sex: Male
  Weight: 114 kg

DRUGS (1)
  1. VELCADE [Suspect]
     Active Substance: BORTEZOMIB
     Indication: Plasma cell myeloma
     Dosage: 3.25 MILLIGRAM, 1/WEEK
     Route: 058
     Dates: start: 20200204

REACTIONS (2)
  - No adverse event [Unknown]
  - Product dose omission issue [Unknown]
